FAERS Safety Report 4612346-2 (Version None)
Quarter: 2005Q1

REPORT INFORMATION
  Report Type: 
  Country: None (occurrence: None)
  Receive Date: 20050316
  Receipt Date: 20050309
  Transmission Date: 20050727
  Serious: Yes (Other)
  Sender: FDA-Public Use
  Company Number: 2005-02-1146

PATIENT
  Age: 45 Year
  Sex: Female
  Weight: 49.8957 kg

DRUGS (7)
  1. PEGASYS [Suspect]
     Indication: HEPATITIS C
     Dosage: 180 MCG QWK SUBCUTANEOUS
     Route: 058
     Dates: start: 20030513, end: 20040901
  2. COPEGUS [Suspect]
     Indication: HEPATITIS C
     Dosage: 800-600*MG QD ORAL
     Route: 048
     Dates: start: 20030513, end: 20040204
  3. COPEGUS [Suspect]
     Indication: HEPATITIS C
     Dosage: 800-600*MG QD ORAL
     Route: 048
     Dates: start: 20040204, end: 20040310
  4. . [Concomitant]
  5. EFFEXOR [Concomitant]
  6. NEUPOGEN [Concomitant]
  7. XANAX [Concomitant]

REACTIONS (21)
  - ARTHRALGIA [None]
  - ARTHRITIS [None]
  - BONE PAIN [None]
  - CHOLELITHIASIS [None]
  - CONDITION AGGRAVATED [None]
  - DEPRESSION [None]
  - ERYTHEMA [None]
  - FATIGUE [None]
  - FIBROMYALGIA [None]
  - HEADACHE [None]
  - HYPOAESTHESIA [None]
  - LEUKOPENIA [None]
  - NAUSEA [None]
  - NERVOUSNESS [None]
  - ONYCHOMADESIS [None]
  - PALLOR [None]
  - PERSONALITY CHANGE [None]
  - RAYNAUD'S PHENOMENON [None]
  - SKIN DISCOLOURATION [None]
  - THERAPY NON-RESPONDER [None]
  - VOMITING [None]
